FAERS Safety Report 8775054 (Version 2)
Quarter: 2013Q4

REPORT INFORMATION
  Report Type: Spontaneous
  Country: US (occurrence: US)
  Receive Date: 20120910
  Receipt Date: 20131101
  Transmission Date: 20140711
  Serious: No
  Sender: FDA-Public Use
  Company Number: US-009507513-1208USA001854

PATIENT
  Age: 52 Year
  Sex: Female
  Weight: 81.63 kg

DRUGS (15)
  1. PEG-INTRON [Suspect]
     Dosage: 150 MCG/0.5 ML, QW, (150 MCG 4 SRY/PK)
     Route: 058
  2. NAPROSYN [Concomitant]
     Dosage: UNK
  3. CARVEDILOL [Concomitant]
     Dosage: UNK
  4. LIDOCAINE [Concomitant]
  5. ALBUTEROL [Concomitant]
  6. VENTOLIN (ALBUTEROL SULFATE) [Concomitant]
  7. WELLBUTRIN [Concomitant]
     Dosage: SR
  8. BISACODYL [Concomitant]
     Dosage: EC
  9. TEMAZEPAM [Concomitant]
     Dosage: UNK
  10. MECLIZINE [Concomitant]
     Dosage: UNK
  11. RIBASPHERE [Concomitant]
     Dosage: UNK
  12. ASPIR-81 [Concomitant]
     Dosage: EC
  13. VITAMIN D (UNSPECIFIED) [Concomitant]
     Dosage: UNK
  14. OXYCODONE [Concomitant]
     Dosage: UNK
  15. AMITRIPTYLIN [Concomitant]
     Dosage: UNK

REACTIONS (5)
  - Anaemia [Unknown]
  - Fatigue [Unknown]
  - Asthenia [Unknown]
  - Dizziness [Unknown]
  - Migraine [Unknown]
